FAERS Safety Report 13153725 (Version 1)
Quarter: 2017Q1

REPORT INFORMATION
  Report Type: Spontaneous
  Country: US (occurrence: US)
  Receive Date: 20170124
  Receipt Date: 20170124
  Transmission Date: 20170428
  Serious: Yes (Other)
  Sender: FDA-Public Use
  Company Number: None

PATIENT
  Age: 6 Year
  Sex: Female
  Weight: 18 kg

DRUGS (3)
  1. CERITINIB [Suspect]
     Active Substance: CERITINIB
     Indication: NEUROBLASTOMA
     Dosage: 350MG PO DAILY X 28 DAYS
     Route: 048
     Dates: start: 20161121, end: 20161218
  2. RIBOCICLIB [Suspect]
     Active Substance: RIBOCICLIB
     Dosage: 100MG PO DAILY X 21 DAYS
     Route: 048
     Dates: start: 20161121, end: 20161211
  3. ZOFRAN [Concomitant]
     Active Substance: ONDANSETRON HYDROCHLORIDE

REACTIONS (1)
  - Transaminases increased [None]

NARRATIVE: CASE EVENT DATE: 20161223
